FAERS Safety Report 9050473 (Version 1)
Quarter: 2013Q1

REPORT INFORMATION
  Report Type: Spontaneous
  Country: US (occurrence: US)
  Receive Date: 20130205
  Receipt Date: 20130205
  Transmission Date: 20140127
  Serious: Yes (Other)
  Sender: FDA-Public Use
  Company Number: US-INCYTE CORPORATION-2012IN002134

PATIENT
  Age: 57 None
  Sex: Female
  Weight: 63.49 kg

DRUGS (3)
  1. JAKAFI [Suspect]
     Indication: MYELOFIBROSIS
     Dosage: 10 MG, BID
     Route: 048
     Dates: start: 20120810
  2. THALOMID [Concomitant]
  3. ASPIRIN [Concomitant]

REACTIONS (1)
  - Cystitis [Recovered/Resolved]
